FAERS Safety Report 23940093 (Version 1)
Quarter: 2024Q2

REPORT INFORMATION
  Report Type: Spontaneous
  Country: US (occurrence: US)
  Receive Date: 20240605
  Receipt Date: 20240605
  Transmission Date: 20240716
  Serious: No
  Sender: FDA-Public Use
  Company Number: US-SUN PHARMACEUTICAL INDUSTRIES LTD-2024R1-437040

PATIENT
  Sex: Female

DRUGS (1)
  1. LENALIDOMIDE [Suspect]
     Active Substance: LENALIDOMIDE
     Indication: Product used for unknown indication
     Dosage: 15 MILLIGRAM, QD FOR 21 D ON 7 DAY OFF
     Route: 065

REACTIONS (6)
  - Ageusia [Unknown]
  - Discharge [Unknown]
  - Fatigue [Unknown]
  - Gait disturbance [Unknown]
  - Insomnia [Unknown]
  - Pain in extremity [Unknown]
